FAERS Safety Report 9168919 (Version 1)
Quarter: 2013Q1

REPORT INFORMATION
  Report Type: Spontaneous
  Country: GB (occurrence: None)
  Receive Date: 20130307
  Receipt Date: 20130307
  Transmission Date: 20140127
  Serious: Yes (Life-Threatening, Hospitalization, Disabling, Other)
  Sender: FDA-Public Use
  Company Number: AXC-2013-000079

PATIENT
  Age: 12 Year
  Sex: Male

DRUGS (1)
  1. NITROGLYCERIN (NITROGLYCERIN) UNKNOWN [Suspect]
     Indication: PRODUCT USED FOR UNKNOWN INDICATION
     Dates: start: 20130208

REACTIONS (2)
  - Violence-related symptom [None]
  - Off label use [None]
